FAERS Safety Report 9983595 (Version 4)
Quarter: 2014Q2

REPORT INFORMATION
  Report Type: Report from Study
  Country: CA (occurrence: CA)
  Receive Date: 20140307
  Receipt Date: 20140410
  Transmission Date: 20141212
  Serious: Yes (Hospitalization)
  Sender: FDA-Public Use
  Company Number: CA-JNJFOC-20140210754

PATIENT
  Age: 45 Year
  Sex: Male
  Weight: 76 kg

DRUGS (8)
  1. REMICADE [Suspect]
     Indication: COLITIS ULCERATIVE
     Route: 042
  2. REMICADE [Suspect]
     Indication: COLITIS ULCERATIVE
     Route: 042
     Dates: start: 20140131
  3. REMICADE [Suspect]
     Indication: COLITIS ULCERATIVE
     Route: 042
     Dates: start: 20140210
  4. REMICADE [Suspect]
     Indication: COLITIS ULCERATIVE
     Route: 042
     Dates: start: 20140131, end: 20140318
  5. SALOFALK [Concomitant]
     Route: 065
  6. PREDNISONE [Concomitant]
     Route: 065
  7. SOLU MEDROL [Concomitant]
     Route: 065
  8. ENOXAPARIN [Concomitant]
     Route: 065

REACTIONS (3)
  - Colitis ulcerative [Unknown]
  - Cytomegalovirus infection [Unknown]
  - Accident [Unknown]
